FAERS Safety Report 9546897 (Version 1)
Quarter: 2013Q2

REPORT INFORMATION
  Report Type: Spontaneous
  Country: US (occurrence: None)
  Receive Date: 20130606
  Receipt Date: 20130606
  Transmission Date: 20140414
  Serious: Yes (Hospitalization)
  Sender: FDA-Public Use
  Company Number: 2013PROUSA02749

PATIENT
  Age: 78 Year
  Sex: Male
  Weight: 90.7 kg

DRUGS (9)
  1. PROVENGE [Suspect]
     Indication: PROSTATE CANCER
     Route: 042
     Dates: start: 20130321, end: 20130321
  2. BICALUTAMID(BICALUTAMIDE) [Concomitant]
  3. SYNTHROID(LEVOTHYROXINE SODIUM) [Concomitant]
  4. ALAVERT(LORATADINE) [Concomitant]
  5. PLAVIX(CLOPIDOGREL BISULFATE) [Concomitant]
  6. TRIPLEPTAL (OXCARBAZEPINE) [Concomitant]
  7. FAMOTIDINE(FAMOTIDINE) [Concomitant]
  8. ACETAMINOPHEN(PARACETAMOL) [Concomitant]
  9. DIPHENHYRAMINE HCL(DIPHENHYDRAMINE HYDROCHLORIDE) [Concomitant]

REACTIONS (2)
  - Infusion related reaction [None]
  - Gastroenteritis viral [None]
